FAERS Safety Report 16660128 (Version 1)
Quarter: 2019Q3

REPORT INFORMATION
  Report Type: Spontaneous
  Country: DK (occurrence: DK)
  Receive Date: 20190802
  Receipt Date: 20190802
  Transmission Date: 20191004
  Serious: Yes (Death)
  Sender: FDA-Public Use
  Company Number: DK-TEVA-2019-DK-1085984

PATIENT
  Age: 42 Year
  Sex: Female

DRUGS (17)
  1. MYFENAX [Suspect]
     Active Substance: MYCOPHENOLATE MOFETIL
     Indication: SYSTEMIC LUPUS ERYTHEMATOSUS
     Dosage: DOSE AND STRENGTH: NOT INDICATED
     Route: 048
     Dates: start: 2016
  2. NEFOXEF [Concomitant]
     Indication: RASH
     Dosage: 540 MILLIGRAM DAILY; STRENGTH: 180 MG
     Route: 048
     Dates: start: 20161220
  3. CALCIUM OG D-VITAMIN [Concomitant]
     Indication: MINERAL SUPPLEMENTATION
     Dosage: 2 DOSAGE FORMS DAILY; STRENGTH: 400 MG + 19 ?G
     Route: 048
     Dates: start: 20161124
  4. COSTAD [Concomitant]
     Indication: OCULAR HYPERTENSION
     Dosage: STRENGTH: 20 + 5 MG/ML. DOSE: AS NEEDED
     Route: 050
     Dates: start: 20161114
  5. ANORO ELLIPTA [Concomitant]
     Active Substance: UMECLIDINIUM BROMIDE\VILANTEROL TRIFENATATE
     Indication: CHRONIC OBSTRUCTIVE PULMONARY DISEASE
     Dosage: 2 DOSAGE FORMS DAILY; STRENGTH: 55 MIKROGRAM / 22 MIKROGRAM
     Route: 055
     Dates: start: 20170123
  6. ENACODAN [Concomitant]
     Active Substance: ENALAPRIL MALEATE
     Indication: HYPERTENSION
     Dosage: 30 MILLIGRAM DAILY; STRENGTH: 10 MG
     Route: 047
     Dates: start: 20161216
  7. OXYCODONE ^TEVA^ [Concomitant]
     Indication: PAIN
     Dosage: STRENGTH: 10 MG. DOSE: 1 CAPSULE WHEN NEEDED
     Route: 048
     Dates: start: 20161113
  8. KLORZOXAZON ^DAK^ [Concomitant]
     Active Substance: CHLORZOXAZONE
     Indication: MUSCLE RELAXANT THERAPY
     Dosage: STRENGTH: 250 MG. DOSE: 1 TABLET WHEN NEEDED, MAXIMUM 3 TIMES DAILY
     Route: 048
     Dates: start: 20180620
  9. JERN C ^MEDIC^ [Concomitant]
     Indication: MINERAL SUPPLEMENTATION
     Dosage: 200 MILLIGRAM DAILY; STRENGTH: 100 MG
     Route: 048
     Dates: start: 20180620
  10. PHENERGAN [Concomitant]
     Active Substance: PROMETHAZINE HYDROCHLORIDE
     Indication: MOTION SICKNESS
     Dosage: 25 MILLIGRAM DAILY; STRENGTH: 25 MG
     Route: 048
     Dates: start: 20180910
  11. IBUMETIN [Concomitant]
     Active Substance: IBUPROFEN
     Indication: PAIN
     Dosage: 1200 MILLIGRAM DAILY; STRENGTH: 400 MG
     Route: 048
     Dates: start: 20170117
  12. BRIMONIDINTARTRAT ^TEVA^ [Concomitant]
     Indication: GLAUCOMA
     Dosage: STRENGTH: 2 MG/ML. DOSE: AS NEEDED
     Route: 050
     Dates: start: 20161114
  13. TERBUTALINSULFAT ^2CARE4^ [Concomitant]
     Indication: ASTHMA
     Dosage: STRENGTH: 0.5 MG/DOSE. DOSE: 1 SUCTION AS NEEDED, MAXIMUM 12 TIMES DAILY
     Route: 055
     Dates: start: 20161011
  14. CENTYL MED KALIUMKLORID [Concomitant]
     Active Substance: BENDROFLUMETHIAZIDE\POTASSIUM CHLORIDE
     Indication: DIURETIC THERAPY
     Dosage: 1 DOSAGE FORMS DAILY; STRENGTH: 2.5 + 573 MG
     Route: 048
     Dates: start: 20170904
  15. SIFROL [Concomitant]
     Active Substance: PRAMIPEXOLE
     Indication: RESTLESS LEGS SYNDROME
     Dosage: .26 MILLIGRAM DAILY; STRENGTH: 0.088 MG
     Route: 048
     Dates: start: 20171003
  16. PLAQUENIL [Concomitant]
     Active Substance: HYDROXYCHLOROQUINE SULFATE
     Indication: SYSTEMIC LUPUS ERYTHEMATOSUS
     Dosage: 400 MILLIGRAM DAILY; STRENGTH: 200 MG
     Route: 048
     Dates: start: 20161216
  17. SUMATRIPTAN ^ACCORD^ [Concomitant]
     Indication: MIGRAINE
     Dosage: STRENGTH: 100 MG: DOSE: 1 TABLET DAILY FOR SEIZURES
     Route: 048
     Dates: start: 20150414

REACTIONS (2)
  - Pulmonary fibrosis [Fatal]
  - Respiratory arrest [Fatal]

NARRATIVE: CASE EVENT DATE: 20190416
